FAERS Safety Report 5805460-7 (Version None)
Quarter: 2008Q3

REPORT INFORMATION
  Report Type: 
  Country: None (occurrence: None)
  Receive Date: 20080710
  Receipt Date: 20080701
  Transmission Date: 20090109
  Serious: Yes (Hospitalization)
  Sender: FDA-Public Use
  Company Number: JP-JNJFOC-20080701283

PATIENT
  Age: 18 Year
  Sex: Female

DRUGS (6)
  1. TOPINA [Suspect]
     Route: 048
  2. TOPINA [Suspect]
     Route: 048
  3. TOPINA [Suspect]
     Indication: LENNOX-GASTAUT SYNDROME
     Route: 048
  4. DEPAKENE [Concomitant]
     Indication: LENNOX-GASTAUT SYNDROME
     Route: 048
  5. EXCEGRAN [Concomitant]
     Indication: LENNOX-GASTAUT SYNDROME
     Route: 048
  6. VIGABATRIN [Concomitant]
     Indication: LENNOX-GASTAUT SYNDROME
     Route: 048

REACTIONS (5)
  - DECREASED ACTIVITY [None]
  - EATING DISORDER [None]
  - MOOD SWINGS [None]
  - PNEUMONIA ASPIRATION [None]
  - URINE OUTPUT DECREASED [None]
